FAERS Safety Report 6525898-2 (Version None)
Quarter: 2010Q1

REPORT INFORMATION
  Report Type: 
  Country: None (occurrence: None)
  Receive Date: 20100104
  Receipt Date: 20091230
  Transmission Date: 20100710
  Serious: Yes (Life-Threatening, Hospitalization)
  Sender: FDA-Public Use
  Company Number: BE-CELGENEUS-013-C5013-09122364

PATIENT
  Sex: Male
  Weight: 76.4 kg

DRUGS (16)
  1. CC-5013 [Suspect]
     Indication: MULTIPLE MYELOMA
     Route: 048
     Dates: start: 20091217, end: 20091223
  2. CC-5013 [Suspect]
     Route: 048
     Dates: start: 20090723
  3. DEXAMETHASONE [Suspect]
     Indication: MULTIPLE MYELOMA
     Route: 048
     Dates: start: 20091217, end: 20091225
  4. DEXAMETHASONE [Suspect]
     Route: 048
     Dates: start: 20090723
  5. DIAMICRON [Concomitant]
     Indication: DIABETES MELLITUS
     Route: 048
     Dates: start: 19940101
  6. KREDEX [Concomitant]
     Indication: LEFT VENTRICULAR DYSFUNCTION
     Route: 048
     Dates: start: 20070101
  7. LOORTAN [Concomitant]
     Indication: LEFT VENTRICULAR DYSFUNCTION
     Route: 048
     Dates: start: 20070101
  8. METFORMAX [Concomitant]
     Indication: DIABETES MELLITUS
     Route: 048
     Dates: start: 20010101
  9. SYMBICORT FORTE [Concomitant]
     Indication: DYSPNOEA
     Dosage: 320/90
     Route: 048
     Dates: start: 20090603
  10. SYMBICORT FORTE [Concomitant]
  11. CLEXANE [Concomitant]
     Indication: THROMBOSIS PROPHYLAXIS
     Route: 048
     Dates: start: 20090723
  12. R-CALM [Concomitant]
     Route: 048
     Dates: start: 20090806
  13. DAFALGAN [Concomitant]
     Indication: PAIN
     Route: 048
     Dates: start: 20090820
  14. ARANESP [Concomitant]
     Indication: ANAEMIA
     Route: 058
     Dates: start: 20091001
  15. ZOMETA [Concomitant]
     Indication: PROPHYLAXIS
     Route: 051
     Dates: start: 20091217, end: 20091217
  16. LAXIDO [Concomitant]
     Indication: CONSTIPATION
     Route: 048
     Dates: start: 20091204

REACTIONS (1)
  - RESPIRATORY TRACT INFECTION [None]
